FAERS Safety Report 23389664 (Version 1)
Quarter: 2024Q1

REPORT INFORMATION
  Report Type: Spontaneous
  Country: CN (occurrence: CN)
  Receive Date: 20240111
  Receipt Date: 20240111
  Transmission Date: 20240409
  Serious: Yes (Hospitalization)
  Sender: FDA-Public Use
  Company Number: CN-SHANGHAI JUNSHI BIOSCIENCES CO., LTD.-CN2023009007

PATIENT

DRUGS (1)
  1. TORIPALIMAB [Suspect]
     Active Substance: TORIPALIMAB
     Indication: Renal cancer
     Dosage: 240 MG, ONCE EVERY 21 DAYS
     Route: 041
     Dates: start: 20231127, end: 20231127

REACTIONS (2)
  - Liver injury [Not Recovered/Not Resolved]
  - Off label use [Unknown]

NARRATIVE: CASE EVENT DATE: 20231127
